FAERS Safety Report 14210549 (Version 2)
Quarter: 2017Q4

REPORT INFORMATION
  Report Type: Spontaneous
  Country: KR (occurrence: KR)
  Receive Date: 20171121
  Receipt Date: 20171130
  Transmission Date: 20180321
  Serious: Yes (Other)
  Sender: FDA-Public Use
  Company Number: KR-009507513-1707KOR005860

PATIENT
  Age: 57 Year
  Sex: Male
  Weight: 54.4 kg

DRUGS (20)
  1. NOXAFIL [Suspect]
     Active Substance: POSACONAZOLE
     Indication: ANTIFUNGAL PROPHYLAXIS
     Dosage: 300 MG, TWICE A DAY
     Route: 048
     Dates: start: 20170605, end: 20170605
  2. NOXAFIL [Suspect]
     Active Substance: POSACONAZOLE
     Dosage: 300 MG, ONCE A DAY
     Route: 048
     Dates: start: 20170606, end: 20170811
  3. FOLIC ACID. [Concomitant]
     Active Substance: FOLIC ACID
     Indication: PROPHYLAXIS
     Dosage: 1 MG, TWICE A DAY
     Route: 048
     Dates: start: 20170525
  4. MAGNESIUM OXIDE. [Concomitant]
     Active Substance: MAGNESIUM OXIDE
     Dosage: 500 MG, THREE TIMES DAY
     Route: 048
     Dates: start: 20170618, end: 20170620
  5. CYTARABINE. [Concomitant]
     Active Substance: CYTARABINE
     Indication: ACUTE MYELOID LEUKAEMIA
     Dosage: 157 MG, ONCE DAILY
     Route: 042
     Dates: start: 20170605, end: 20170611
  6. ONDANSETRON [Concomitant]
     Active Substance: ONDANSETRON
     Dosage: 8 MG, ONCE DAILY
     Route: 042
     Dates: start: 20170711, end: 20170716
  7. ONDANSETRON [Concomitant]
     Active Substance: ONDANSETRON
     Indication: PROPHYLAXIS OF NAUSEA AND VOMITING
     Dosage: 8 MG, ONCE DAILY
     Route: 042
     Dates: start: 20170605, end: 20170607
  8. CEFEPIME [Concomitant]
     Active Substance: CEFEPIME HYDROCHLORIDE
     Indication: PYREXIA
     Dosage: 2 G, TWICE A DAY
     Route: 042
     Dates: start: 20170525, end: 20170607
  9. AMIKACIN [Concomitant]
     Active Substance: AMIKACIN
     Dosage: 375 MG, TWICE A DAY
     Route: 042
     Dates: start: 20170613, end: 20170615
  10. ALLOPURINOL. [Concomitant]
     Active Substance: ALLOPURINOL
     Indication: PROPHYLAXIS
     Dosage: 100 MG, QD
     Route: 048
     Dates: start: 20170525, end: 20170612
  11. IDARUBICIN HYDROCHLORIDE. [Concomitant]
     Active Substance: IDARUBICIN HYDROCHLORIDE
     Indication: ACUTE MYELOID LEUKAEMIA
     Dosage: 18.84 MG, ONCE DAILY
     Route: 042
     Dates: start: 20170605, end: 20170607
  12. CYTARABINE. [Concomitant]
     Active Substance: CYTARABINE
     Dosage: 160 MG, ONCE DAILY
     Route: 042
     Dates: start: 20170711, end: 20170715
  13. CEFEPIME [Concomitant]
     Active Substance: CEFEPIME HYDROCHLORIDE
     Dosage: 2 G, ONCE DAILY
     Route: 042
     Dates: start: 20170719, end: 20170723
  14. MAGNESIUM OXIDE. [Concomitant]
     Active Substance: MAGNESIUM OXIDE
     Indication: CONSTIPATION
     Dosage: 250 MG, THREE TIMES DAY
     Route: 048
     Dates: start: 20170530, end: 20170607
  15. VITAMIN B COMPLEX [Concomitant]
     Active Substance: CYANOCOBALAMIN\DEXPANTHENOL\NIACINAMIDE\PYRIDOXINE HYDROCHLORIDE\RIBOFLAVIN 5^-PHOSPHATE SODIUM\THIAMINE HYDROCHLORIDE\VITAMIN B COMPLEX
     Indication: PROPHYLAXIS
     Dosage: 1 TAB, ONCE DAILY
     Route: 048
     Dates: start: 20170526
  16. CEFEPIME [Concomitant]
     Active Substance: CEFEPIME HYDROCHLORIDE
     Dosage: 2 G, TWICE A DAY
     Route: 042
     Dates: start: 20170613, end: 20170615
  17. AMIKACIN [Concomitant]
     Active Substance: AMIKACIN
     Indication: PYREXIA
     Dosage: 375 MG, TWICE A DAY
     Route: 042
     Dates: start: 20170525, end: 20170607
  18. AMIKACIN [Concomitant]
     Active Substance: AMIKACIN
     Dosage: 375 MG, TWICE A DAY
     Route: 042
     Dates: start: 20170719, end: 20170723
  19. MAXNOPHEN [Concomitant]
     Indication: HEADACHE
     Dosage: 1 TABLET, THREE TIMES DAY
     Route: 048
     Dates: start: 20170527, end: 20170612
  20. CHLORPHENIRAMINE MALEATE. [Concomitant]
     Active Substance: CHLORPHENIRAMINE MALEATE
     Indication: ALLERGY PROPHYLAXIS
     Dosage: 4 MG, PRN
     Route: 042
     Dates: start: 20170525, end: 20170811

REACTIONS (8)
  - Drug eruption [Recovered/Resolved]
  - Insomnia [Recovered/Resolved]
  - Nausea [Recovered/Resolved]
  - Nausea [Recovered/Resolved]
  - Mouth ulceration [Recovered/Resolved]
  - Decreased appetite [Recovered/Resolved]
  - Neutropenia [Recovered/Resolved]
  - Dysuria [Recovered/Resolved]

NARRATIVE: CASE EVENT DATE: 20170605
